FAERS Safety Report 12096766 (Version 1)
Quarter: 2016Q1

REPORT INFORMATION
  Report Type: Other
  Country: US (occurrence: US)
  Receive Date: 20160220
  Receipt Date: 20160220
  Transmission Date: 20160526
  Serious: No
  Sender: FDA-Public Use
  Company Number: US-ACORDA-ACO_108804_2015

PATIENT
  Age: 54 Year
  Sex: Male

DRUGS (1)
  1. AMPYRA [Suspect]
     Active Substance: DALFAMPRIDINE
     Indication: TREMOR
     Dosage: 10 MG, QD
     Route: 048
     Dates: start: 20150129

REACTIONS (4)
  - Inappropriate schedule of drug administration [Unknown]
  - Vision blurred [Unknown]
  - Off label use [Unknown]
  - Balance disorder [Unknown]

NARRATIVE: CASE EVENT DATE: 20150129
